FAERS Safety Report 5519257-9 (Version None)
Quarter: 2007Q4

REPORT INFORMATION
  Report Type: 
  Country: None (occurrence: None)
  Receive Date: 20071114
  Receipt Date: 20071030
  Transmission Date: 20080405
  Serious: Yes (Life-Threatening)
  Sender: FDA-Public Use
  Company Number: 2007S1011186

PATIENT
  Age: 66 Year
  Sex: Male
  Weight: 60 kg

DRUGS (5)
  1. FLUCONAZOLE [Suspect]
     Indication: DRUG USE FOR UNKNOWN INDICATION
     Dosage: 200 MG; INTRAVENOUS
     Route: 042
     Dates: start: 20070929
  2. ALLOPURINOL [Concomitant]
  3. MEROPENEM [Concomitant]
  4. RANITIDINE HCL [Concomitant]
  5. TAZOCIN [Concomitant]

REACTIONS (1)
  - BLOOD PRESSURE DECREASED [None]
